FAERS Safety Report 4607378-4 (Version None)
Quarter: 2005Q1

REPORT INFORMATION
  Report Type: 
  Country: None (occurrence: None)
  Receive Date: 20050314
  Receipt Date: 20050119
  Transmission Date: 20050727
  Serious: Yes (Life-Threatening, Hospitalization)
  Sender: FDA-Public Use
  Company Number: US-ROCHE-392956

PATIENT
  Age: 48 Year
  Sex: Female

DRUGS (2)
  1. CELLCEPT [Suspect]
     Indication: DRUG USE FOR UNKNOWN INDICATION
     Route: 065
     Dates: start: 20030615
  2. INTERFERON BETA-1A [Concomitant]
     Route: 030

REACTIONS (6)
  - CHOLECYSTITIS [None]
  - DISSEMINATED CYTOMEGALOVIRAL INFECTION [None]
  - HEPATITIS [None]
  - PNEUMONITIS [None]
  - RESPIRATORY FAILURE [None]
  - URINARY TRACT INFECTION [None]
